FAERS Safety Report 15484211 (Version 1)
Quarter: 2018Q4

REPORT INFORMATION
  Report Type: Spontaneous
  Country: US (occurrence: US)
  Receive Date: 20181010
  Receipt Date: 20181010
  Transmission Date: 20190205
  Serious: No
  Sender: FDA-Public Use
  Company Number: US-FRESENIUS KABI-FK201810539

PATIENT
  Sex: Female

DRUGS (1)
  1. FLUOROURACIL INJECTION, USP [Suspect]
     Active Substance: FLUOROURACIL
     Indication: PRODUCT USED FOR UNKNOWN INDICATION
     Route: 065

REACTIONS (2)
  - Paraesthesia [Not Recovered/Not Resolved]
  - Accidental exposure to product [Not Recovered/Not Resolved]
